FAERS Safety Report 14084265 (Version 1)
Quarter: 2017Q4

REPORT INFORMATION
  Report Type: Report from Study
  Country: None (occurrence: BR)
  Receive Date: 20171013
  Receipt Date: 20171013
  Transmission Date: 20180321
  Serious: Yes (Other)
  Sender: FDA-Public Use
  Company Number: BR-ABBVIE-17K-020-2128760-00

PATIENT
  Sex: Female
  Weight: 53 kg

DRUGS (6)
  1. HUMIRA [Suspect]
     Active Substance: ADALIMUMAB
     Route: 058
  2. AZATHIOPRINE. [Concomitant]
     Active Substance: AZATHIOPRINE
     Indication: CROHN^S DISEASE
     Route: 048
  3. AZATHIOPRINE. [Concomitant]
     Active Substance: AZATHIOPRINE
     Route: 048
     Dates: start: 201707
  4. HUMIRA [Suspect]
     Active Substance: ADALIMUMAB
     Route: 058
     Dates: start: 201710
  5. HUMIRA [Suspect]
     Active Substance: ADALIMUMAB
     Route: 058
     Dates: start: 2017, end: 2017
  6. HUMIRA [Suspect]
     Active Substance: ADALIMUMAB
     Indication: CROHN^S DISEASE
     Dosage: UNKNOWN LOADING DOSE
     Route: 058
     Dates: start: 20120101, end: 20120101

REACTIONS (12)
  - Urinary tract infection [Recovered/Resolved]
  - Immunodeficiency [Unknown]
  - Inflammation [Unknown]
  - Candida infection [Recovered/Resolved]
  - Candida infection [Recovering/Resolving]
  - Herpes virus infection [Recovered/Resolved]
  - Pharyngitis [Recovered/Resolved]
  - Anal fistula [Recovering/Resolving]
  - Pharyngitis [Recovering/Resolving]
  - Blood test abnormal [Unknown]
  - Oropharyngeal pain [Recovered/Resolved]
  - Crohn^s disease [Unknown]

NARRATIVE: CASE EVENT DATE: 2012
